FAERS Safety Report 14874955 (Version 1)
Quarter: 2018Q2

REPORT INFORMATION
  Report Type: Spontaneous
  Country: FR (occurrence: FR)
  Receive Date: 20180510
  Receipt Date: 20180510
  Transmission Date: 20180711
  Serious: Yes (Life-Threatening, Hospitalization)
  Sender: FDA-Public Use
  Company Number: FR-AUROBINDO-AUR-APL-2018-024679

PATIENT
  Age: 3 Year
  Sex: Female
  Weight: 16.6 kg

DRUGS (5)
  1. VINCRISTINE SULFATE. [Interacting]
     Active Substance: VINCRISTINE SULFATE
     Indication: ACUTE LYMPHOCYTIC LEUKAEMIA
     Dosage: 1.5 MILLIGRAM/SQ. METER
     Route: 048
     Dates: start: 20180317, end: 20180317
  2. RIVOTRIL [Suspect]
     Active Substance: CLONAZEPAM
     Indication: PAIN
     Dosage: 0.3 MILLIGRAM
     Route: 048
     Dates: start: 20180315, end: 20180322
  3. VFEND [Interacting]
     Active Substance: VORICONAZOLE
     Indication: FEBRILE BONE MARROW APLASIA
     Dosage: 145 MILLIGRAM
     Route: 048
     Dates: start: 20180316, end: 20180321
  4. PARACETAMOL [Suspect]
     Active Substance: ACETAMINOPHEN
     Indication: PAIN
     Dosage: 250 MILLIGRAM
     Route: 048
     Dates: start: 201801, end: 20180321
  5. LAROXYL [Suspect]
     Active Substance: AMITRIPTYLINE HYDROCHLORIDE
     Indication: PAIN
     Dosage: 6 MILLIGRAM
     Route: 048
     Dates: start: 20180315, end: 20180322

REACTIONS (2)
  - Cholestasis [Recovered/Resolved]
  - Hepatitis [Recovered/Resolved]

NARRATIVE: CASE EVENT DATE: 20180315
